FAERS Safety Report 6074208-6 (Version None)
Quarter: 2009Q1

REPORT INFORMATION
  Report Type: 
  Country: None (occurrence: None)
  Receive Date: 20090211
  Receipt Date: 20090206
  Transmission Date: 20090719
  Serious: Yes (Other)
  Sender: FDA-Public Use
  Company Number: FR-AVENTIS-200813398FR

PATIENT
  Sex: Male

DRUGS (1)
  1. LOVENOX [Suspect]
     Dates: start: 20050601, end: 20080601

REACTIONS (2)
  - FRACTURE [None]
  - OSTEOPENIA [None]
